FAERS Safety Report 15723473 (Version 1)
Quarter: 2018Q4

REPORT INFORMATION
  Report Type: Spontaneous
  Country: DE (occurrence: DE)
  Receive Date: 20181214
  Receipt Date: 20181214
  Transmission Date: 20190205
  Serious: Yes (Hospitalization)
  Sender: FDA-Public Use
  Company Number: DE-ASTRAZENECA-2018SF61693

PATIENT
  Age: 74 Year
  Sex: Female
  Weight: 64 kg

DRUGS (10)
  1. TICAGRELOR. [Concomitant]
     Active Substance: TICAGRELOR
     Dosage: 1-0-1
     Dates: start: 201710
  2. METFORMIN AND DPP4 INHIBITOR (SITAGLIPTIN) [Concomitant]
     Dosage: (1-0-1)
     Dates: start: 201801
  3. TICAGRELOR. [Suspect]
     Active Substance: TICAGRELOR
     Route: 048
  4. ATORVASTATIN [Concomitant]
     Active Substance: ATORVASTATIN
     Dosage: (0-0-1)
     Dates: start: 201710
  5. METFORMIN [Concomitant]
     Active Substance: METFORMIN HYDROCHLORIDE
     Dosage: (1-0-1)
     Dates: start: 2004
  6. EMPAGLIFLOZIN [Concomitant]
     Active Substance: EMPAGLIFLOZIN
     Dosage: (1-0-0)
     Dates: start: 201710
  7. ASPIRIN. [Concomitant]
     Active Substance: ASPIRIN
     Dosage: 1-0-1
     Dates: start: 201710
  8. CANDESARTAN. [Concomitant]
     Active Substance: CANDESARTAN
     Dosage: (1-0-0)
     Dates: start: 201710
  9. TICAGRELOR. [Suspect]
     Active Substance: TICAGRELOR
     Route: 048
     Dates: start: 201710
  10. AMLODIPIN [Concomitant]
     Active Substance: AMLODIPINE BESYLATE
     Dates: start: 201710

REACTIONS (1)
  - Diabetes mellitus inadequate control [Unknown]

NARRATIVE: CASE EVENT DATE: 201810
